FAERS Safety Report 20739775 (Version 1)
Quarter: 2022Q2

REPORT INFORMATION
  Report Type: Spontaneous
  Country: US (occurrence: None)
  Receive Date: 20220421
  Receipt Date: 20220421
  Transmission Date: 20220721
  Serious: Yes (Disabling, Other)
  Sender: FDA-Public Use
  Company Number: None

PATIENT
  Age: 48 Year
  Sex: Female
  Weight: 133.36 kg

DRUGS (16)
  1. NEXPLANON [Suspect]
     Active Substance: ETONOGESTREL
     Indication: Menstrual disorder
     Dates: start: 20160324, end: 20211220
  2. ALPRAZOLAM [Concomitant]
     Active Substance: ALPRAZOLAM
  3. AMITRIPTYLINE [Concomitant]
     Active Substance: AMITRIPTYLINE
  4. ANASTROZOLE [Concomitant]
     Active Substance: ANASTROZOLE
  5. ATORVASTATIN [Concomitant]
     Active Substance: ATORVASTATIN
  6. BUPROPION [Concomitant]
     Active Substance: BUPROPION
  7. carbidop-levodopa [Concomitant]
  8. FLUOXETINE [Concomitant]
     Active Substance: FLUOXETINE HYDROCHLORIDE
  9. HYDROXYZINE PAMOATE [Concomitant]
     Active Substance: HYDROXYZINE PAMOATE
  10. INSULIN NOS [Concomitant]
     Active Substance: INSULIN NOS
  11. LATUDA [Concomitant]
     Active Substance: LURASIDONE HYDROCHLORIDE
  12. METHOCARBAMOL [Concomitant]
     Active Substance: METHOCARBAMOL
  13. pergabalin [Concomitant]
  14. ROPINIROLE [Concomitant]
     Active Substance: ROPINIROLE
  15. TOPIRAMATE [Concomitant]
     Active Substance: TOPIRAMATE
  16. VALACYCLOVIR [Concomitant]
     Active Substance: VALACYCLOVIR HYDROCHLORIDE

REACTIONS (3)
  - Invasive ductal breast carcinoma [None]
  - Breast mass [None]
  - Lymphadenectomy [None]

NARRATIVE: CASE EVENT DATE: 20211123
